FAERS Safety Report 8346718 (Version 3)
Quarter: 2013Q3

REPORT INFORMATION
  Report Type: Spontaneous
  Country: US (occurrence: US)
  Receive Date: 20120120
  Receipt Date: 20130906
  Transmission Date: 20140515
  Serious: Yes (Hospitalization)
  Sender: FDA-Public Use
  Company Number: US-GLAXOSMITHKLINE-A0864850A

PATIENT
  Age: 48 Year
  Sex: Female

DRUGS (1)
  1. AVANDIA [Suspect]
     Indication: DIABETES MELLITUS
     Route: 048

REACTIONS (5)
  - Coronary artery disease [Not Recovered/Not Resolved]
  - Transient ischaemic attack [Unknown]
  - Hypertension [Unknown]
  - Dyslipidaemia [Unknown]
  - Myocardial infarction [Unknown]
